FAERS Safety Report 7322642-6 (Version None)
Quarter: 2011Q1

REPORT INFORMATION
  Report Type: 
  Country: None (occurrence: None)
  Receive Date: 20110301
  Receipt Date: 20091231
  Transmission Date: 20110831
  Serious: No
  Sender: FDA-Public Use
  Company Number: US-PFIZER INC-2009316383

PATIENT
  Sex: Female

DRUGS (4)
  1. GLIMEPIRIDE [Suspect]
     Dosage: 2 MG, UNK
  2. GLUCOTROL [Suspect]
     Dosage: 5 MG, UNK
  3. SAXAGLIPTIN [Suspect]
     Dosage: 5 MG, UNK
  4. GLUCOVANCE [Suspect]
     Dosage: 1 DF, UNK

REACTIONS (1)
  - BLOOD GLUCOSE FLUCTUATION [None]
